FAERS Safety Report 8844624 (Version 1)
Quarter: 2012Q4

REPORT INFORMATION
  Report Type: 
  Country: US (occurrence: US)
  Receive Date: 20121017
  Receipt Date: 20121017
  Transmission Date: 20130627
  Serious: No
  Sender: FDA-Public Use
  Company Number: US-PFIZER INC-2012257203

PATIENT
  Age: 68 Year
  Sex: Female
  Weight: 63.5 kg

DRUGS (5)
  1. ADVIL [Suspect]
     Indication: ARTHRITIS
     Dosage: UNK
     Route: 048
  2. ADVIL [Suspect]
     Indication: ARTHRALGIA
     Dosage: UNK, 2x/day
     Route: 048
  3. AMLODIPINE BESILATE [Suspect]
     Indication: HYPERTENSION
     Dosage: UNK
  4. BENICAR HCT [Suspect]
     Indication: HYPERTENSION
     Dosage: UNK
  5. BYSTOLIC [Suspect]
     Indication: HYPERTENSION
     Dosage: UNK

REACTIONS (1)
  - Blood pressure increased [Unknown]
